FAERS Safety Report 12936774 (Version 2)
Quarter: 2017Q1

REPORT INFORMATION
  Report Type: Spontaneous
  Country: PT (occurrence: PT)
  Receive Date: 20161114
  Receipt Date: 20170120
  Transmission Date: 20170428
  Serious: Yes (Hospitalization, Other)
  Sender: FDA-Public Use
  Company Number: PT-PFIZER INC-2016520774

PATIENT
  Age: 81 Year
  Sex: Male

DRUGS (1)
  1. LEDERTREXATO [Suspect]
     Active Substance: METHOTREXATE SODIUM
     Indication: RHEUMATOID ARTHRITIS
     Dosage: 7.5 MG, WEEKLY
     Route: 048
     Dates: start: 20020520

REACTIONS (7)
  - Inflammatory marker increased [Recovered/Resolved]
  - Hyperhidrosis [Recovered/Resolved]
  - Enterococcal bacteraemia [Recovered/Resolved]
  - Asthenia [Recovered/Resolved]
  - Systemic infection [Recovered/Resolved]
  - Urinary tract infection [Recovered/Resolved]
  - Weight decreased [Recovered/Resolved]

NARRATIVE: CASE EVENT DATE: 20160719
